FAERS Safety Report 17852062 (Version 1)
Quarter: 2020Q2

REPORT INFORMATION
  Report Type: Spontaneous
  Country: US (occurrence: US)
  Receive Date: 20200602
  Receipt Date: 20200602
  Transmission Date: 20200714
  Serious: No
  Sender: FDA-Public Use
  Company Number: US-BAYER-2020-086306

PATIENT
  Age: 14 Year
  Sex: Male

DRUGS (2)
  1. KOGENATE FS [Suspect]
     Active Substance: ANTIHEMOPHILIC FACTOR, HUMAN RECOMBINANT
     Dosage: 5542 U, UNK
  2. KOGENATE FS [Suspect]
     Active Substance: ANTIHEMOPHILIC FACTOR, HUMAN RECOMBINANT
     Dosage: UNK (4 EXTRA DOSES TO TREAT PULLED MUSCLE)
     Dates: start: 20200509

REACTIONS (1)
  - Muscle strain [Recovered/Resolved]

NARRATIVE: CASE EVENT DATE: 20200508
